FAERS Safety Report 4473842-4 (Version None)
Quarter: 2004Q4

REPORT INFORMATION
  Report Type: 
  Country: None (occurrence: None)
  Receive Date: 20041008
  Receipt Date: 20041008
  Transmission Date: 20050328
  Serious: Yes (Hospitalization, Disabling)
  Sender: FDA-Public Use
  Company Number: None

PATIENT
  Age: 31 Year
  Sex: Female
  Weight: 48.0813 kg

DRUGS (1)
  1. CUPRAMINE (PENACILLAMINE) [Suspect]
     Indication: HEPATO-LENTICULAR DEGENERATION
     Dosage: 8 X DAILY
     Dates: start: 19880101, end: 19900101

REACTIONS (1)
  - ABASIA [None]
